FAERS Safety Report 6967429-9 (Version None)
Quarter: 2010Q3

REPORT INFORMATION
  Report Type: 
  Country: None (occurrence: None)
  Receive Date: 20100907
  Receipt Date: 20100827
  Transmission Date: 20110219
  Serious: Yes (Hospitalization)
  Sender: FDA-Public Use
  Company Number: US-ELI_LILLY_AND_COMPANY-US201008008177

PATIENT
  Sex: Female
  Weight: 99.773 kg

DRUGS (2)
  1. BYETTA [Suspect]
     Indication: DIABETES MELLITUS
     Dosage: 5 UG, 2/D
     Route: 058
     Dates: start: 20100301
  2. XANAX [Concomitant]
     Indication: ANXIETY
     Dosage: 1 MG, DAILY (1/D)

REACTIONS (9)
  - ADVERSE DRUG REACTION [None]
  - ANXIETY [None]
  - CARDIAC FAILURE CONGESTIVE [None]
  - DYSPNOEA [None]
  - HEART RATE DECREASED [None]
  - HEART RATE INCREASED [None]
  - HYPERHIDROSIS [None]
  - PRURITUS [None]
  - STRESS [None]
